FAERS Safety Report 15577710 (Version 5)
Quarter: 2022Q1

REPORT INFORMATION
  Report Type: Spontaneous
  Country: PT (occurrence: PT)
  Receive Date: 20181102
  Receipt Date: 20220323
  Transmission Date: 20220423
  Serious: Yes (Life-Threatening, Hospitalization, Other)
  Sender: FDA-Public Use
  Company Number: None

PATIENT
  Age: 30 Year
  Sex: Female

DRUGS (8)
  1. ASPIRIN [Suspect]
     Active Substance: ASPIRIN
     Indication: Symptomatic treatment
     Dosage: UNK
     Route: 065
  2. CLOPIDOGREL [Suspect]
     Active Substance: CLOPIDOGREL BISULFATE
     Indication: Symptomatic treatment
     Dosage: UNK
     Route: 065
  3. OMEPRAZOLE [Suspect]
     Active Substance: OMEPRAZOLE
     Indication: Gastroenteritis
     Dosage: 40 MILLIGRAM
     Route: 042
  4. DOXYCYCLINE [Suspect]
     Active Substance: DOXYCYCLINE
     Indication: Salmonellosis
     Dosage: UNK
     Route: 065
  5. ENOXAPARIN [Suspect]
     Active Substance: ENOXAPARIN
     Indication: Symptomatic treatment
     Dosage: UNK
     Route: 065
  6. IBUPROFEN [Suspect]
     Active Substance: IBUPROFEN
     Indication: Product used for unknown indication
     Dosage: UNK
     Route: 065
  7. NOREPINEPHRINE [Suspect]
     Active Substance: NOREPINEPHRINE
     Indication: Product used for unknown indication
     Dosage: UNK
     Route: 042
  8. PIPERACILLIN AND TAZOBACTAM [Concomitant]
     Active Substance: PIPERACILLIN SODIUM\TAZOBACTAM SODIUM
     Indication: Septic shock
     Dosage: 4.5 GRAM, FOUR TIMES/DAY
     Route: 065

REACTIONS (13)
  - Kounis syndrome [Recovered/Resolved]
  - Hypotension [Unknown]
  - Polyserositis [Recovered/Resolved]
  - Altered state of consciousness [Unknown]
  - Electrocardiogram abnormal [Unknown]
  - Salmonellosis [Unknown]
  - Anaphylactic reaction [Recovered/Resolved]
  - Pericardial effusion [Recovered/Resolved]
  - Chest pain [Unknown]
  - Rebound effect [Unknown]
  - Pleural effusion [Recovered/Resolved]
  - Gastroenteritis [Recovered/Resolved]
  - Off label use [Recovered/Resolved]
